FAERS Safety Report 5415172-X (Version None)
Quarter: 2007Q3

REPORT INFORMATION
  Report Type: 
  Country: None (occurrence: None)
  Receive Date: 20070815
  Receipt Date: 20070711
  Transmission Date: 20080115
  Serious: No
  Sender: FDA-Public Use
  Company Number: A0663368A

PATIENT
  Age: 69 Year
  Sex: Male

DRUGS (10)
  1. COREG CR [Suspect]
     Indication: LEFT VENTRICULAR DYSFUNCTION
     Dosage: 80MG PER DAY
     Route: 048
     Dates: start: 20070704
  2. ALTACE [Concomitant]
  3. NORVASC [Concomitant]
  4. LIPITOR [Concomitant]
  5. ASPIRIN [Concomitant]
  6. FISH OIL [Concomitant]
  7. CO Q10 [Concomitant]
  8. FOLIC ACID [Concomitant]
  9. PREVACID [Concomitant]
  10. HYDROCHLOROTHIAZIDE [Concomitant]

REACTIONS (1)
  - CARDIAC FLUTTER [None]
